FAERS Safety Report 10606885 (Version 1)
Quarter: 2014Q4

REPORT INFORMATION
  Report Type: Spontaneous
  Country: GB (occurrence: GB)
  Receive Date: 20141125
  Receipt Date: 20141125
  Transmission Date: 20150529
  Serious: Yes (Other)
  Sender: FDA-Public Use
  Company Number: GB-JNJFOC-20141111727

PATIENT
  Age: 11 Week
  Sex: Female

DRUGS (1)
  1. CALPOL [Suspect]
     Active Substance: ACETAMINOPHEN
     Indication: PYREXIA
     Route: 048

REACTIONS (9)
  - Skin discolouration [Unknown]
  - Choking [Unknown]
  - Cough [Unknown]
  - Product quality issue [Unknown]
  - Product taste abnormal [Unknown]
  - Loss of consciousness [Unknown]
  - Unresponsive to stimuli [Unknown]
  - Respiratory arrest [Recovered/Resolved]
  - Liquid product physical issue [Unknown]
